FAERS Safety Report 8452145-7 (Version None)
Quarter: 2012Q2

REPORT INFORMATION
  Report Type: 
  Country: None (occurrence: None)
  Receive Date: 20120620
  Receipt Date: 20120410
  Transmission Date: 20120825
  Serious: Yes (Other)
  Sender: FDA-Public Use
  Company Number: NL-GLAXOSMITHKLINE-B0752351A

PATIENT
  Age: 3 Year
  Sex: Male

DRUGS (1)
  1. FLUTICASONE FUROATE [Suspect]
     Indication: ASTHMA
     Dosage: 250UG TWICE PER DAY
     Route: 065

REACTIONS (8)
  - DECREASED ACTIVITY [None]
  - INCORRECT DRUG ADMINISTRATION DURATION [None]
  - BLOOD CORTISOL DECREASED [None]
  - DECREASED APPETITE [None]
  - CUSHING'S SYNDROME [None]
  - HYPERSOMNIA [None]
  - ADRENAL INSUFFICIENCY [None]
  - GROWTH RETARDATION [None]
